FAERS Safety Report 5835344-X (Version None)
Quarter: 2008Q3

REPORT INFORMATION
  Report Type: 
  Country: None (occurrence: None)
  Receive Date: 20080806
  Receipt Date: 20080729
  Transmission Date: 20090109
  Serious: Yes (Death, Congenital Anomaly, Other)
  Sender: FDA-Public Use
  Company Number: GB-WYE-G01490708

PATIENT
  Sex: Male
  Weight: 2.9 kg

DRUGS (4)
  1. EFFEXOR [Suspect]
     Indication: MENTAL DISORDER
     Dosage: 150 MG FREQUENCY UNKNOWN
     Route: 064
     Dates: start: 20030101
  2. CODEINE PHOSPHATE [Concomitant]
     Indication: PAIN
     Dosage: 60 MG FREQUENCY UNKNOWN
     Route: 064
     Dates: start: 20080201, end: 20080201
  3. LACTULOSE [Concomitant]
     Indication: CONSTIPATION
     Dosage: 3.25 MG FREQUENCY UNKNOWN
     Route: 064
     Dates: start: 20080201, end: 20080201
  4. OLANZAPINE [Suspect]
     Indication: MENTAL DISORDER
     Dosage: 15 MG FREQUENCY UNKNOWN
     Route: 064
     Dates: start: 20030101

REACTIONS (5)
  - CONGENITAL DIAPHRAGMATIC HERNIA [None]
  - DRUG EXPOSURE DURING PREGNANCY [None]
  - NEONATAL DISORDER [None]
  - PREMATURE LABOUR [None]
  - PULMONARY HYPOPLASIA [None]
